FAERS Safety Report 6753629-X (Version None)
Quarter: 2010Q2

REPORT INFORMATION
  Report Type: 
  Country: None (occurrence: None)
  Receive Date: 20100603
  Receipt Date: 20100525
  Transmission Date: 20101027
  Serious: Yes (Other)
  Sender: FDA-Public Use
  Company Number: FR-RB-010282-10

PATIENT
  Sex: Male

DRUGS (4)
  1. SUBUTEX [Suspect]
     Indication: DRUG THERAPY
     Route: 060
  2. ATHYMIL [Concomitant]
     Indication: DRUG USE FOR UNKNOWN INDICATION
     Route: 065
     Dates: start: 20080601
  3. EQUANIL [Concomitant]
     Indication: DRUG USE FOR UNKNOWN INDICATION
     Route: 065
  4. MYOLASTAN [Concomitant]
     Indication: DRUG USE FOR UNKNOWN INDICATION
     Route: 065
     Dates: start: 20080801

REACTIONS (3)
  - AGORAPHOBIA [None]
  - INSOMNIA [None]
  - SOMNOLENCE [None]
